FAERS Safety Report 22111187 (Version 3)
Quarter: 2023Q1

REPORT INFORMATION
  Report Type: Spontaneous
  Country: JP (occurrence: JP)
  Receive Date: 20230317
  Receipt Date: 20230328
  Transmission Date: 20230418
  Serious: Yes (Other)
  Sender: FDA-Public Use
  Company Number: JP-BAYER-2023A033902

PATIENT
  Age: 8 Decade
  Sex: Male

DRUGS (1)
  1. IOPAMIRON [Suspect]
     Active Substance: IOPAMIDOL
     Indication: Intracranial aneurysm
     Dosage: 240 ML, SINGLE
     Route: 065

REACTIONS (2)
  - Contrast encephalopathy [Unknown]
  - Extra dose administered [Unknown]
